FAERS Safety Report 10399327 (Version 1)
Quarter: 2014Q3

REPORT INFORMATION
  Report Type: Report from Study
  Country: DE (occurrence: DE)
  Receive Date: 20140821
  Receipt Date: 20140821
  Transmission Date: 20150326
  Serious: Yes (Hospitalization, Other)
  Sender: FDA-Public Use
  Company Number: DE-ABBVIE-14P-062-1272962-00

PATIENT
  Age: 37 Year
  Sex: Male
  Weight: 60 kg

DRUGS (4)
  1. PANTOPRAZOLE [Concomitant]
     Active Substance: PANTOPRAZOLE SODIUM
     Indication: PRODUCT USED FOR UNKNOWN INDICATION
  2. HUMIRA [Suspect]
     Active Substance: ADALIMUMAB
     Indication: CROHN^S DISEASE
     Route: 058
     Dates: start: 2007
  3. METOPROLOL [Concomitant]
     Active Substance: METOPROLOL
     Indication: PRODUCT USED FOR UNKNOWN INDICATION
  4. MESALAZINE [Concomitant]
     Active Substance: MESALAMINE
     Indication: PRODUCT USED FOR UNKNOWN INDICATION

REACTIONS (15)
  - Abdominal pain lower [Recovered/Resolved]
  - Nausea [Recovered/Resolved]
  - Haematochezia [Recovered/Resolved]
  - Adhesiolysis [Recovered/Resolved]
  - Crohn^s disease [Unknown]
  - Anastomotic ulcer [Unknown]
  - Diarrhoea [Recovered/Resolved]
  - Intestinal haemorrhage [Recovered/Resolved]
  - Nausea [Recovered/Resolved]
  - Iron deficiency anaemia [Not Recovered/Not Resolved]
  - Diarrhoea [Recovered/Resolved]
  - Small intestinal stenosis [Recovered/Resolved]
  - Ventricular fibrillation [Recovered/Resolved]
  - Gastroenteritis [Recovered/Resolved]
  - General physical health deterioration [Recovered/Resolved]

NARRATIVE: CASE EVENT DATE: 20090218
